FAERS Safety Report 9493333 (Version 1)
Quarter: 2013Q3

REPORT INFORMATION
  Report Type: Spontaneous
  Country: GB (occurrence: GB)
  Receive Date: 20130902
  Receipt Date: 20130902
  Transmission Date: 20140515
  Serious: Yes (Other)
  Sender: FDA-Public Use
  Company Number: GB-JNJFOC-20130815882

PATIENT
  Age: 39 Year
  Sex: Female

DRUGS (4)
  1. TRAMADOL HYDROCHLORIDE [Suspect]
     Indication: PAIN
     Route: 048
  2. VENLAFAXINE [Suspect]
     Indication: MOOD ALTERED
     Route: 048
  3. PREGABALIN [Suspect]
     Indication: PRODUCT USED FOR UNKNOWN INDICATION
     Route: 065
  4. TEGRETOL [Suspect]
     Indication: PAIN
     Route: 048

REACTIONS (3)
  - Premature labour [Recovered/Resolved]
  - Exposure during breast feeding [Unknown]
  - Maternal exposure during pregnancy [Recovered/Resolved]
